FAERS Safety Report 10037376 (Version 2)
Quarter: 2014Q2

REPORT INFORMATION
  Report Type: Report from Study
  Country: US (occurrence: US)
  Receive Date: 20140326
  Receipt Date: 20140418
  Transmission Date: 20141212
  Serious: Yes (Hospitalization, Other)
  Sender: FDA-Public Use
  Company Number: PHEH2014US005819

PATIENT
  Age: 21 Year
  Sex: Male
  Weight: 75 kg

DRUGS (8)
  1. TOBI PODHALER [Suspect]
     Indication: CYSTIC FIBROSIS
     Dosage: 112 MG, BID
     Route: 055
     Dates: start: 201403, end: 20140318
  2. TOBI PODHALER [Suspect]
     Indication: CYSTIC FIBROSIS LUNG
  3. PULMOZYME [Concomitant]
     Dosage: UNK UKN, UNK
  4. ALBUTEROL [Concomitant]
     Dosage: UNK UKN, UNK
  5. CREON [Concomitant]
     Dosage: UNK UKN, UNK
  6. MULTIVIT//VITAMINS NOS [Concomitant]
     Dosage: UNK UKN, UNK
  7. AZITHROMAX [Concomitant]
     Dosage: UNK UKN, UNK
  8. PRILOSEC [Concomitant]
     Dosage: UNK UKN, UNK

REACTIONS (5)
  - Chills [Not Recovered/Not Resolved]
  - Pyrexia [Not Recovered/Not Resolved]
  - Dysphonia [Not Recovered/Not Resolved]
  - Cystic fibrosis [Unknown]
  - Condition aggravated [Unknown]
